FAERS Safety Report 19286678 (Version 3)
Quarter: 2021Q4

REPORT INFORMATION
  Report Type: Report from Study
  Country: None (occurrence: US)
  Receive Date: 20210522
  Receipt Date: 20211026
  Transmission Date: 20220304
  Serious: Yes (Other)
  Sender: FDA-Public Use
  Company Number: US-ABBVIE-21K-163-3899102-00

PATIENT
  Age: 45 Year
  Sex: Female
  Weight: 102.6 kg

DRUGS (14)
  1. HUMIRA [Suspect]
     Active Substance: ADALIMUMAB
     Indication: Rheumatoid arthritis
     Dosage: CITRATE FREE
     Route: 058
     Dates: start: 20210421
  2. HUMIRA [Suspect]
     Active Substance: ADALIMUMAB
     Indication: Colitis ulcerative
  3. HUMIRA [Suspect]
     Active Substance: ADALIMUMAB
     Indication: Polyarthritis
  4. COVID-19 VACCINE [Concomitant]
     Indication: COVID-19 immunisation
     Route: 030
     Dates: start: 20210331, end: 20210331
  5. COVID-19 VACCINE [Concomitant]
     Route: 030
     Dates: start: 20210421, end: 20210421
  6. METHOTREXATE [Concomitant]
     Active Substance: METHOTREXATE
     Indication: Rheumatoid arthritis
  7. TRAMADOL [Concomitant]
     Active Substance: TRAMADOL
     Indication: Pain
  8. TRAMADOL [Concomitant]
     Active Substance: TRAMADOL
     Indication: Sleep disorder therapy
  9. LYRICA [Concomitant]
     Active Substance: PREGABALIN
     Indication: Fibromyalgia
  10. LEVOTHYROXINE [Concomitant]
     Active Substance: LEVOTHYROXINE
     Indication: Autoimmune thyroiditis
  11. LEVOTHYROXINE [Concomitant]
     Active Substance: LEVOTHYROXINE
     Indication: Hypothyroidism
  12. FOLIC ACID [Concomitant]
     Active Substance: FOLIC ACID
     Indication: Product used for unknown indication
  13. DULOXETINE [Concomitant]
     Active Substance: DULOXETINE
     Indication: Product used for unknown indication
  14. TIZANIDINE [Concomitant]
     Active Substance: TIZANIDINE
     Indication: Muscle relaxant therapy

REACTIONS (11)
  - Loss of consciousness [Unknown]
  - Syncope [Recovered/Resolved]
  - Dehydration [Recovering/Resolving]
  - Dizziness [Unknown]
  - Autoimmune thyroiditis [Unknown]
  - Asthenia [Unknown]
  - Visual impairment [Unknown]
  - Fibromyalgia [Unknown]
  - Nausea [Unknown]
  - Vomiting [Unknown]
  - Injection site erythema [Unknown]

NARRATIVE: CASE EVENT DATE: 20210101
